FAERS Safety Report 7405525-2 (Version None)
Quarter: 2011Q2

REPORT INFORMATION
  Report Type: 
  Country: None (occurrence: None)
  Receive Date: 20110411
  Receipt Date: 20110329
  Transmission Date: 20111010
  Serious: No
  Sender: FDA-Public Use
  Company Number: B0708672A

PATIENT

DRUGS (3)
  1. ASVERIN [Concomitant]
     Route: 063
  2. CALONAL [Concomitant]
     Route: 063
  3. RELENZA [Suspect]
     Indication: INFLUENZA
     Dosage: 20MG PER DAY
     Route: 063
     Dates: start: 20110322, end: 20110326

REACTIONS (2)
  - DRUG EXPOSURE VIA BREAST MILK [None]
  - NO ADVERSE EVENT [None]
